FAERS Safety Report 8940737 (Version 1)
Quarter: 2012Q4

REPORT INFORMATION
  Report Type: 
  Country: FR (occurrence: FR)
  Receive Date: 20121203
  Receipt Date: 20121203
  Transmission Date: 20130627
  Serious: Yes (Hospitalization)
  Sender: FDA-Public Use
  Company Number: FR-JNJFOC-20121111040

PATIENT
  Age: 72 Year
  Sex: Male

DRUGS (3)
  1. RISPERDAL [Suspect]
     Indication: CONFUSIONAL STATE
     Route: 065
     Dates: start: 20120723, end: 20120801
  2. LASILIX [Suspect]
     Indication: PRODUCT USED FOR UNKNOWN INDICATION
     Route: 065
     Dates: start: 20120717, end: 20120801
  3. IMOVANE [Suspect]
     Indication: PRODUCT USED FOR UNKNOWN INDICATION
     Route: 065
     Dates: start: 20120712, end: 20120801

REACTIONS (1)
  - Hepatocellular injury [Recovered/Resolved]
